FAERS Safety Report 7889138-4 (Version None)
Quarter: 2011Q4

REPORT INFORMATION
  Report Type: 
  Country: None (occurrence: None)
  Receive Date: 20111101
  Receipt Date: 20111027
  Transmission Date: 20120403
  Serious: Yes (Hospitalization)
  Sender: FDA-Public Use
  Company Number: 2011SP045082

PATIENT
  Age: 53 Year
  Sex: Male
  Weight: 112 kg

DRUGS (3)
  1. TEMOZOLOMIDE [Suspect]
     Indication: GLIOMA
     Dosage: UNK;UNK
     Dates: start: 20110920
  2. ENOXAPARIN SODIUM [Concomitant]
  3. TEMOZOLOMIDE [Suspect]
     Indication: GLIOMA
     Dosage: 160 MG;UNK;PO
     Route: 048
     Dates: start: 20110816

REACTIONS (4)
  - IMMUNOSUPPRESSION [None]
  - HYPOTENSION [None]
  - PULMONARY EMBOLISM [None]
  - SEPSIS [None]
